FAERS Safety Report 8568825 (Version 2)
Quarter: 2012Q4

REPORT INFORMATION
  Report Type: 
  Country: PT (occurrence: PT)
  Receive Date: 20120518
  Receipt Date: 20121031
  Transmission Date: 20130627
  Serious: Yes (Other)
  Sender: FDA-Public Use
  Company Number: PT-ELI_LILLY_AND_COMPANY-PT201205001977

PATIENT
  Age: 55 Year
  Sex: Male

DRUGS (5)
  1. CIALIS [Suspect]
     Indication: ERECTILE DYSFUNCTION
     Dosage: 20 mg, prn
     Route: 048
     Dates: start: 201111
  2. CIALIS [Suspect]
     Dosage: 1 DF, unknown
     Route: 048
     Dates: start: 201111
  3. CIALIS [Suspect]
     Dosage: 10 mg, UNK
     Route: 048
  4. CIALIS [Suspect]
     Dosage: 5 mg, UNK
     Route: 048
  5. ANTIHYPERTENSIVES [Concomitant]

REACTIONS (5)
  - Cataract [Unknown]
  - Abnormal sensation in eye [Not Recovered/Not Resolved]
  - Iris disorder [Unknown]
  - Vision blurred [Not Recovered/Not Resolved]
  - Wrong technique in drug usage process [Unknown]
